FAERS Safety Report 6761715-3 (Version None)
Quarter: 2010Q2

REPORT INFORMATION
  Report Type: 
  Country: None (occurrence: None)
  Receive Date: 20100503
  Receipt Date: 20100419
  Transmission Date: 20101027
  Serious: Yes (Life-Threatening)
  Sender: FDA-Public Use
  Company Number: GAM-070-10-PT

PATIENT
  Age: 62 Year
  Sex: Female

DRUGS (6)
  1. OCTAGAM [Suspect]
     Indication: IMMUNODEFICIENCY COMMON VARIABLE
     Dosage: I.V.
     Route: 042
     Dates: start: 20100325, end: 20100325
  2. CLEMASTINE FUMARATE [Concomitant]
  3. ACETAMINOPHEN [Concomitant]
  4. FOLIC ACID [Concomitant]
  5. 80 % (PROPRANOLOL) [Concomitant]
  6. URSODIOL [Concomitant]

REACTIONS (3)
  - COUGH [None]
  - DYSPNOEA [None]
  - LARYNGEAL OEDEMA [None]
